FAERS Safety Report 9181032 (Version 1)
Quarter: 2013Q1

REPORT INFORMATION
  Report Type: Spontaneous
  Country: US (occurrence: None)
  Receive Date: 20130320
  Receipt Date: 20130320
  Transmission Date: 20140127
  Serious: Yes (Hospitalization)
  Sender: FDA-Public Use
  Company Number: 2013P1002998

PATIENT
  Age: 69 Year
  Sex: Female

DRUGS (24)
  1. REGLAN [Suspect]
  2. CIPROFLOXACIN [Suspect]
  3. ATIVAN [Suspect]
  4. LIPITOR [Concomitant]
  5. XANAX [Concomitant]
  6. PROTONIX [Concomitant]
  7. CALAN [Concomitant]
  8. JANUVIA [Concomitant]
  9. COMBIVENT [Concomitant]
  10. NULEV [Concomitant]
  11. MAGNESIUM [Concomitant]
  12. TRICOR [Concomitant]
  13. PROZAC [Concomitant]
  14. DOXAZOAIN MESYLATE [Concomitant]
  15. FUROSEMIDE [Concomitant]
  16. VITAMIN D [Concomitant]
  17. LISINOPRIL [Concomitant]
  18. OXYCODONE HCL [Concomitant]
  19. OXYCONTIN ER [Concomitant]
  20. FIORICET [Concomitant]
  21. PLAVIX [Concomitant]
  22. LOSARTAN [Concomitant]
  23. REQUIP [Concomitant]
  24. COLCRYS [Concomitant]

REACTIONS (2)
  - Drug hypersensitivity [None]
  - Tremor [None]
